FAERS Safety Report 17950221 (Version 1)
Quarter: 2020Q2

REPORT INFORMATION
  Report Type: Spontaneous
  Country: IT (occurrence: IT)
  Receive Date: 20200626
  Receipt Date: 20200626
  Transmission Date: 20200714
  Serious: Yes (Hospitalization)
  Sender: FDA-Public Use
  Company Number: IT-TEVA-2020-IT-1791488

PATIENT
  Age: 63 Year
  Sex: Male

DRUGS (1)
  1. AMOXICILLIN. [Suspect]
     Active Substance: AMOXICILLIN
     Route: 048
     Dates: start: 20200518, end: 20200518

REACTIONS (3)
  - Loss of consciousness [Recovering/Resolving]
  - Urticaria [Recovering/Resolving]
  - Dermatosis [Recovering/Resolving]

NARRATIVE: CASE EVENT DATE: 20200518
